FAERS Safety Report 7633671-7 (Version None)
Quarter: 2011Q3

REPORT INFORMATION
  Report Type: 
  Country: None (occurrence: None)
  Receive Date: 20110725
  Receipt Date: 20110718
  Transmission Date: 20111222
  Serious: Yes (Death)
  Sender: FDA-Public Use
  Company Number: FR-GLAXOSMITHKLINE-B0733595A

PATIENT
  Sex: Male

DRUGS (12)
  1. PANTOPRAZOLE SODIUM [Suspect]
     Indication: GASTROINTESTINAL ULCER
     Dosage: 40MG TWICE PER DAY
     Route: 048
     Dates: start: 20101101
  2. COLCHICINE [Suspect]
     Dosage: 1TAB PER DAY
     Route: 048
     Dates: start: 20110115
  3. ARIXTRA [Suspect]
     Indication: ATRIAL FIBRILLATION
     Dosage: 7.5MG PER DAY
     Route: 058
     Dates: start: 20101101
  4. ALBUTEROL [Suspect]
     Indication: CHRONIC OBSTRUCTIVE PULMONARY DISEASE
     Dosage: 1PUFF THREE TIMES PER DAY
     Route: 055
  5. ALPRAZOLAM [Suspect]
     Dosage: .5MG PER DAY
     Route: 048
     Dates: start: 20110115
  6. KETOPROFEN [Suspect]
     Dosage: 100MG PER DAY
     Route: 048
     Dates: start: 20110115
  7. CORDARONE [Suspect]
     Indication: CARDIAC FAILURE
     Dosage: 200MG PER DAY
     Route: 048
     Dates: start: 20101101
  8. FERROUS SULFATE TAB [Suspect]
     Indication: ANAEMIA
     Dosage: 80MG TWICE PER DAY
     Route: 048
     Dates: start: 20101101
  9. IPRATROPIUM BROMIDE [Suspect]
     Indication: CHRONIC OBSTRUCTIVE PULMONARY DISEASE
     Dosage: 1PUFF THREE TIMES PER DAY
     Route: 055
  10. ALLOPURINOL [Suspect]
     Indication: GOUT
     Dosage: 100MG PER DAY
     Route: 048
  11. ACETAMINOPHEN [Suspect]
     Route: 048
     Dates: start: 20110115
  12. DIGOXIN [Suspect]
     Indication: CARDIAC FAILURE
     Dosage: .125MG PER DAY
     Route: 048
     Dates: start: 20110105

REACTIONS (6)
  - RETROPERITONEAL HAEMORRHAGE [None]
  - INCORRECT DRUG ADMINISTRATION DURATION [None]
  - BACK PAIN [None]
  - OFF LABEL USE [None]
  - PALLOR [None]
  - CARDIAC ARREST [None]
